FAERS Safety Report 5913051-2 (Version None)
Quarter: 2008Q4

REPORT INFORMATION
  Report Type: 
  Country: None (occurrence: None)
  Receive Date: 20081006
  Receipt Date: 20080925
  Transmission Date: 20090506
  Serious: Yes (Hospitalization)
  Sender: FDA-Public Use
  Company Number: 2008BI025292

PATIENT
  Age: 50 Year
  Sex: Male

DRUGS (4)
  1. AVONEX [Suspect]
     Indication: MULTIPLE SCLEROSIS
     Dosage: IM; IM
     Route: 030
     Dates: start: 19960815, end: 20070520
  2. AVONEX [Suspect]
     Indication: MULTIPLE SCLEROSIS
     Dosage: IM; IM
     Route: 030
     Dates: start: 20080808
  3. . [Concomitant]
  4. TYSABRI (PREV.) [Concomitant]

REACTIONS (1)
  - ARTHRITIS INFECTIVE [None]
